FAERS Safety Report 5725048-6 (Version None)
Quarter: 2008Q2

REPORT INFORMATION
  Report Type: 
  Country: None (occurrence: None)
  Receive Date: 20080501
  Receipt Date: 20080421
  Transmission Date: 20081010
  Serious: Yes (Hospitalization)
  Sender: FDA-Public Use
  Company Number: DE-ELI_LILLY_AND_COMPANY-DE200804005149

PATIENT
  Age: 75 Year
  Sex: Male

DRUGS (8)
  1. CYMBALTA [Suspect]
     Indication: DEPRESSION
     Dosage: UNK, UNK
  2. CYMBALTA [Suspect]
     Dosage: 30 CAPSULES OF 60 MG
     Route: 048
     Dates: start: 20080418, end: 20080418
  3. ASPIRIN [Concomitant]
  4. CLOPIDOGREL [Concomitant]
  5. DELIX [Concomitant]
  6. L-THYROXINE [Concomitant]
  7. LAMOTRIGINE [Concomitant]
  8. ALLOPURINOL [Concomitant]

REACTIONS (6)
  - GAIT DISTURBANCE [None]
  - HYPERHIDROSIS [None]
  - INTENTIONAL OVERDOSE [None]
  - SPEECH DISORDER [None]
  - SUICIDE ATTEMPT [None]
  - TREMOR [None]
